FAERS Safety Report 7657821-1 (Version None)
Quarter: 2011Q3

REPORT INFORMATION
  Report Type: 
  Country: None (occurrence: None)
  Receive Date: 20110805
  Receipt Date: 20110721
  Transmission Date: 20111222
  Serious: No
  Sender: FDA-Public Use
  Company Number: US-BIOGENIDEC-2010BI038426

PATIENT
  Sex: Female

DRUGS (4)
  1. BENADRYL [Concomitant]
     Indication: PREMEDICATION
     Route: 048
  2. TYSABRI [Suspect]
     Route: 042
     Dates: start: 20100908
  3. SOLU-MEDROL [Concomitant]
     Indication: PREMEDICATION
     Route: 042
  4. TYSABRI [Suspect]
     Indication: MULTIPLE SCLEROSIS
     Route: 042
     Dates: start: 20050113, end: 20050213

REACTIONS (7)
  - MULTIPLE ALLERGIES [None]
  - HYPERSENSITIVITY [None]
  - THROAT IRRITATION [None]
  - EYE SWELLING [None]
  - URTICARIA [None]
  - CHILLS [None]
  - RASH [None]
